FAERS Safety Report 16162428 (Version 2)
Quarter: 2019Q2

REPORT INFORMATION
  Report Type: Spontaneous
  Country: US (occurrence: US)
  Receive Date: 20190405
  Receipt Date: 20190510
  Transmission Date: 20190711
  Serious: Yes (Other)
  Sender: FDA-Public Use
  Company Number: US-ROCHE-2297646

PATIENT
  Sex: Male
  Weight: 74.91 kg

DRUGS (1)
  1. XOLAIR [Suspect]
     Active Substance: OMALIZUMAB
     Indication: URTICARIA
     Dosage: ONGOING: UNKNOWN
     Route: 058
     Dates: start: 20160421

REACTIONS (4)
  - Fall [Unknown]
  - Wrist fracture [Recovered/Resolved with Sequelae]
  - Fracture [Unknown]
  - Joint dislocation [Recovering/Resolving]
